FAERS Safety Report 9221179 (Version 1)
Quarter: 2013Q2

REPORT INFORMATION
  Report Type: Spontaneous
  Country: GB (occurrence: GB)
  Receive Date: 20130409
  Receipt Date: 20130409
  Transmission Date: 20140414
  Serious: Yes (Other)
  Sender: FDA-Public Use
  Company Number: GB-BRISTOL-MYERS SQUIBB COMPANY-18726786

PATIENT
  Age: 64 Year
  Sex: 0
  Weight: 73 kg

DRUGS (1)
  1. IRBESARTAN [Suspect]
     Indication: HYPERTENSION
     Route: 048
     Dates: start: 2011, end: 20120312

REACTIONS (2)
  - Product substitution issue [Recovering/Resolving]
  - Blood pressure inadequately controlled [Recovering/Resolving]
